FAERS Safety Report 20170824 (Version 1)
Quarter: 2021Q4

REPORT INFORMATION
  Report Type: Report from Study
  Country: US (occurrence: US)
  Receive Date: 20211210
  Receipt Date: 20211210
  Transmission Date: 20220303
  Serious: Yes (Hospitalization)
  Sender: FDA-Public Use
  Company Number: US-JAZZ-2021-US-021784

PATIENT
  Age: 79 Year
  Sex: Male
  Weight: 105.2 kg

DRUGS (8)
  1. CYTARABINE\DAUNORUBICIN [Suspect]
     Active Substance: CYTARABINE\DAUNORUBICIN
     Indication: Haematological malignancy
     Dosage: 13.2 MG/M2 DAUNORUBICIN, 30 MG/M2 CYTARABINE, DAY 1 AND DAY 3
     Route: 042
     Dates: start: 20210819, end: 20210821
  2. VENETOCLAX [Suspect]
     Active Substance: VENETOCLAX
     Indication: Haematological malignancy
     Dosage: 400 MILLIGRAM, QD
     Route: 048
     Dates: start: 20210820, end: 20210831
  3. METRONIDAZOLE [Concomitant]
     Active Substance: METRONIDAZOLE
     Dosage: 500 MILLIGRAM, Q8HRS
     Route: 048
     Dates: start: 20210828
  4. ACYCLOVIR [Concomitant]
     Active Substance: ACYCLOVIR
     Dosage: 400 MILLIGRAM, TID
     Route: 048
     Dates: start: 20210828
  5. LEVOFLOXACIN [Concomitant]
     Active Substance: LEVOFLOXACIN
     Dosage: 750 MILLIGRAM, Q24H
     Route: 048
  6. NYSTATIN [Concomitant]
     Active Substance: NYSTATIN
     Dosage: 500,000 UNITS, QID
     Route: 048
     Dates: start: 20210828
  7. OMEPRAZOLE [Concomitant]
     Active Substance: OMEPRAZOLE
     Dosage: 200 MILLIGRAM, QD
     Route: 048
     Dates: start: 20210806
  8. CITALOPRAM [Concomitant]
     Active Substance: CITALOPRAM HYDROBROMIDE
     Dosage: 10 MILLIGRAM, QD
     Route: 048
     Dates: start: 20210717

REACTIONS (2)
  - Urinary incontinence [Not Recovered/Not Resolved]
  - Confusional state [Not Recovered/Not Resolved]

NARRATIVE: CASE EVENT DATE: 20210901
